FAERS Safety Report 11404393 (Version 1)
Quarter: 2015Q3

REPORT INFORMATION
  Report Type: Spontaneous
  Country: GB (occurrence: GB)
  Receive Date: 20150821
  Receipt Date: 20150821
  Transmission Date: 20151125
  Serious: Yes (Hospitalization)
  Sender: FDA-Public Use
  Company Number: PHFR2014GB005981

PATIENT
  Age: 45 Year
  Sex: Male

DRUGS (5)
  1. CLOZARIL [Suspect]
     Active Substance: CLOZAPINE
     Indication: SCHIZOPHRENIA
     Dosage: UNK
     Route: 048
     Dates: start: 20050224
  2. CLOZARIL [Suspect]
     Active Substance: CLOZAPINE
     Dosage: UNK (OVERDOSE)
     Route: 048
     Dates: start: 20140826
  3. CLOZARIL [Suspect]
     Active Substance: CLOZAPINE
     Dosage: UNK (OVERDOSE)
     Route: 048
     Dates: end: 20150813
  4. CLOZARIL [Suspect]
     Active Substance: CLOZAPINE
     Dosage: UNK
     Route: 048
     Dates: start: 20140701, end: 20140710
  5. CLOZARIL [Suspect]
     Active Substance: CLOZAPINE
     Dosage: UNK
     Dates: start: 20140909

REACTIONS (2)
  - Schizophrenia [Unknown]
  - Overdose [Unknown]

NARRATIVE: CASE EVENT DATE: 20140826
